FAERS Safety Report 13756982 (Version 4)
Quarter: 2017Q4

REPORT INFORMATION
  Report Type: Spontaneous
  Country: US (occurrence: US)
  Receive Date: 20170714
  Receipt Date: 20171129
  Transmission Date: 20180320
  Serious: Yes (Hospitalization)
  Sender: FDA-Public Use
  Company Number: US-TAKEDA-2017MPI006085

PATIENT
  Age: 76 Year
  Sex: Female

DRUGS (17)
  1. LEXAPRO [Concomitant]
     Active Substance: ESCITALOPRAM OXALATE
     Dosage: UNK
     Route: 065
  2. ZOLPIDEM TARTRATE. [Concomitant]
     Active Substance: ZOLPIDEM TARTRATE
     Dosage: UNK
     Route: 065
  3. ASPIRIN 81 [Concomitant]
     Active Substance: ASPIRIN
     Dosage: UNK
     Route: 065
  4. NINLARO [Suspect]
     Active Substance: IXAZOMIB CITRATE
     Indication: PLASMA CELL MYELOMA
     Dosage: 4 MG, UNK
     Route: 048
     Dates: start: 20150106
  5. POMALYST [Concomitant]
     Active Substance: POMALIDOMIDE
     Dosage: 2 MG, UNK
     Route: 065
  6. LISINOPRIL. [Concomitant]
     Active Substance: LISINOPRIL
     Dosage: UNK
     Route: 065
  7. METFORMIN HCL [Concomitant]
     Active Substance: METFORMIN HYDROCHLORIDE
     Dosage: UNK
     Route: 065
  8. HYDROCORTISONE. [Concomitant]
     Active Substance: HYDROCORTISONE
     Dosage: UNK
     Route: 065
  9. GLYBURIDE. [Concomitant]
     Active Substance: GLYBURIDE
     Dosage: UNK
     Route: 065
  10. SIMVASTATIN. [Concomitant]
     Active Substance: SIMVASTATIN
     Dosage: UNK
     Route: 065
  11. AMBIEN [Concomitant]
     Active Substance: ZOLPIDEM TARTRATE
     Dosage: UNK
     Route: 065
  12. JANUVIA [Concomitant]
     Active Substance: SITAGLIPTIN PHOSPHATE
     Dosage: UNK
  13. CLOBETASOL PROPIONATE E [Concomitant]
     Dosage: UNK
     Route: 065
  14. NINLARO [Suspect]
     Active Substance: IXAZOMIB CITRATE
     Dosage: 4 MG, 1/WEEK
     Route: 048
     Dates: start: 20170617
  15. DEXAMETHASONE. [Suspect]
     Active Substance: DEXAMETHASONE
     Indication: PLASMA CELL MYELOMA
     Dosage: UNK
     Route: 065
  16. BENADRYL [Concomitant]
     Active Substance: DIPHENHYDRAMINE HYDROCHLORIDE
     Dosage: UNK
     Route: 065
  17. MULTAQ [Concomitant]
     Active Substance: DRONEDARONE
     Dosage: UNK
     Route: 065

REACTIONS (8)
  - Pharyngeal oedema [Unknown]
  - Dyspnoea [Unknown]
  - Dizziness [Unknown]
  - Rash [Unknown]
  - Fatigue [Unknown]
  - Influenza like illness [Unknown]
  - Asthenia [Unknown]
  - Off label use [Unknown]

NARRATIVE: CASE EVENT DATE: 20170710
